FAERS Safety Report 13166529 (Version 1)
Quarter: 2017Q1

REPORT INFORMATION
  Report Type: Spontaneous
  Country: US (occurrence: US)
  Receive Date: 20170126
  Receipt Date: 20170126
  Transmission Date: 20170428
  Serious: No
  Sender: FDA-Public Use
  Company Number: None

PATIENT
  Age: 71 Year
  Sex: Female
  Weight: 60 kg

DRUGS (7)
  1. RITUXIMAB [Concomitant]
     Active Substance: RITUXIMAB
  2. ACETAMINOPHEN. [Concomitant]
     Active Substance: ACETAMINOPHEN
  3. PROCHLORPERAZINE. [Concomitant]
     Active Substance: PROCHLORPERAZINE
  4. BENDAMUSTINE [Concomitant]
     Active Substance: BENDAMUSTINE
  5. ONDANSETRON [Concomitant]
     Active Substance: ONDANSETRON
  6. ALLOPURINOL. [Concomitant]
     Active Substance: ALLOPURINOL
  7. MIRTAZEPINE [Suspect]
     Active Substance: MIRTAZAPINE
     Indication: MOOD SWINGS
     Dates: start: 20170123, end: 20170123

REACTIONS (6)
  - Pyrexia [None]
  - Fatigue [None]
  - Rash morbilliform [None]
  - Influenza like illness [None]
  - Rash [None]
  - Dry mouth [None]

NARRATIVE: CASE EVENT DATE: 20170126
